FAERS Safety Report 12304119 (Version 1)
Quarter: 2016Q2

REPORT INFORMATION
  Report Type: Spontaneous
  Country: US (occurrence: None)
  Receive Date: 20160425
  Receipt Date: 20160425
  Transmission Date: 20160815
  Serious: No
  Sender: FDA-Public Use
  Company Number: None

PATIENT
  Age: 45 Year
  Sex: Female
  Weight: 44 kg

DRUGS (3)
  1. MONTELUKAST [Suspect]
     Active Substance: MONTELUKAST SODIUM
     Indication: RHINITIS
     Route: 048
     Dates: start: 20160414, end: 20160420
  2. RANITIDINE. [Concomitant]
     Active Substance: RANITIDINE
  3. DYMISTA [Concomitant]
     Active Substance: AZELASTINE HYDROCHLORIDE\FLUTICASONE PROPIONATE

REACTIONS (6)
  - Gingival bleeding [None]
  - Mouth swelling [None]
  - Throat irritation [None]
  - Abdominal discomfort [None]
  - Nightmare [None]
  - Anxiety [None]

NARRATIVE: CASE EVENT DATE: 20160421
